FAERS Safety Report 4620643-X (Version None)
Quarter: 2005Q1

REPORT INFORMATION
  Report Type: 
  Country: None (occurrence: None)
  Receive Date: 20050325
  Receipt Date: 20050307
  Transmission Date: 20050727
  Serious: No
  Sender: FDA-Public Use
  Company Number: A01200501275

PATIENT
  Age: 41 Year
  Sex: Female

DRUGS (2)
  1. STILNOX                     (ZOPIDEM) [Suspect]
     Dosage: 20 MG ONCE ORAL
     Route: 048
     Dates: start: 20030620, end: 20030620
  2. ALPHAMOX                              (AMOXICILLIN TRIHYDRATE) [Suspect]

REACTIONS (5)
  - AGITATION [None]
  - LOOSE ASSOCIATIONS [None]
  - MANIA [None]
  - TANGENTIALITY [None]
  - THINKING ABNORMAL [None]
